FAERS Safety Report 5157406-5 (Version None)
Quarter: 2006Q4

REPORT INFORMATION
  Report Type: 
  Country: None (occurrence: None)
  Receive Date: 20061127
  Receipt Date: 20060919
  Transmission Date: 20070319
  Serious: Yes (Other)
  Sender: FDA-Public Use
  Company Number: CA-ROCHE-464194

PATIENT
  Age: 58 Year
  Sex: Male

DRUGS (2)
  1. PEGASYS [Suspect]
     Dosage: FORM REPORTED AS PFS (PRE-FILLED SYRINGE).
     Route: 058
     Dates: start: 20060712, end: 20060913
  2. COPEGUS [Concomitant]
     Indication: HEPATITIS C
     Route: 048
     Dates: start: 20060712, end: 20060913

REACTIONS (3)
  - CATARACT [None]
  - DRUG TOXICITY [None]
  - RETINAL HAEMORRHAGE [None]
